FAERS Safety Report 20719429 (Version 1)
Quarter: 2022Q2

REPORT INFORMATION
  Report Type: Spontaneous
  Country: US (occurrence: None)
  Receive Date: 20220416
  Receipt Date: 20220416
  Transmission Date: 20220720
  Serious: Yes (Hospitalization)
  Sender: FDA-Public Use
  Company Number: None

PATIENT
  Sex: Female
  Weight: 52.7 kg

DRUGS (1)
  1. ARIMIDEX [Suspect]
     Active Substance: ANASTROZOLE
     Dates: end: 20220405

REACTIONS (3)
  - Blood pressure increased [None]
  - Cholecystitis acute [None]
  - Blood glucose increased [None]

NARRATIVE: CASE EVENT DATE: 20220331
